FAERS Safety Report 25580013 (Version 2)
Quarter: 2025Q3

REPORT INFORMATION
  Report Type: Spontaneous
  Country: CO (occurrence: CO)
  Receive Date: 20250718
  Receipt Date: 20250918
  Transmission Date: 20251020
  Serious: Yes (Other)
  Sender: BIOMARIN
  Company Number: CO-BIOMARINAP-CO-2025-167362

PATIENT
  Age: 46 Year
  Sex: Male
  Weight: 45.5 kg

DRUGS (1)
  1. VIMIZIM [Suspect]
     Active Substance: ELOSULFASE ALFA
     Indication: Mucopolysaccharidosis IV
     Dosage: 96.3 MILLIGRAM, QW
     Dates: start: 20240410

REACTIONS (4)
  - Respiratory distress [Recovering/Resolving]
  - Rash [Recovering/Resolving]
  - Dizziness [Recovering/Resolving]
  - Nausea [Recovering/Resolving]

NARRATIVE: CASE EVENT DATE: 20250710
